FAERS Safety Report 7543005-4 (Version None)
Quarter: 2011Q2

REPORT INFORMATION
  Report Type: 
  Country: None (occurrence: None)
  Receive Date: 20110613
  Receipt Date: 20110601
  Transmission Date: 20111010
  Serious: Yes (Other)
  Sender: FDA-Public Use
  Company Number: PHHY2011BR07944

PATIENT
  Sex: Female

DRUGS (1)
  1. EXELON [Suspect]
     Dosage: 4.5 MG, BID
     Route: 048

REACTIONS (3)
  - GASTRITIS [None]
  - ABDOMINAL PAIN UPPER [None]
  - DEMENTIA ALZHEIMER'S TYPE [None]
